FAERS Safety Report 18699644 (Version 1)
Quarter: 2021Q1

REPORT INFORMATION
  Report Type: Report from Study
  Country: NO (occurrence: NO)
  Receive Date: 20210104
  Receipt Date: 20210104
  Transmission Date: 20210419
  Serious: Yes (Hospitalization)
  Sender: FDA-Public Use
  Company Number: NO-TAKEDA-NO202033814

PATIENT
  Age: 61 Year
  Sex: Female

DRUGS (20)
  1. TEDUGLUTIDE [Suspect]
     Active Substance: TEDUGLUTIDE
     Dosage: 2.3 MILLIGRAM (0.05 MILLIGRAM/KILOGRAM DAILY DOSE, 7 DOSES PER WEEK), OTHER
     Route: 065
     Dates: start: 20190402
  2. AFIPRAN [Concomitant]
     Active Substance: METOCLOPRAMIDE HYDROCHLORIDE
     Indication: NAUSEA
  3. TEDUGLUTIDE [Suspect]
     Active Substance: TEDUGLUTIDE
     Indication: SHORT-BOWEL SYNDROME
     Dosage: 1.3 MILLIGRAM (0.03 MILLIGRAM/KILOGRAM DAILY DOSE, 7 DOSES PER WEEK), OTHER
     Route: 065
     Dates: start: 20171117, end: 20180809
  4. TEDUGLUTIDE [Suspect]
     Active Substance: TEDUGLUTIDE
     Dosage: 1.8 MILLIGRAM (0.04 MILLIGRAM/KILOGRAM DAILY DOSE, 7 DOSES PER WEEK), OTHER
     Route: 065
     Dates: start: 20180809, end: 20181120
  5. TEDUGLUTIDE [Suspect]
     Active Substance: TEDUGLUTIDE
     Dosage: 2 MILLIGRAM (0.04 MILLIGRAM/KILOGRAM DAILY DOSE, 7 DOSES PER WEEK), OTHER
     Route: 065
     Dates: start: 20181120, end: 20190402
  6. TEDUGLUTIDE [Suspect]
     Active Substance: TEDUGLUTIDE
     Dosage: 2 MILLIGRAM (0.04 MILLIGRAM/KILOGRAM DAILY DOSE, 7 DOSES PER WEEK), OTHER
     Route: 065
     Dates: start: 20181120, end: 20190402
  7. TEDUGLUTIDE [Suspect]
     Active Substance: TEDUGLUTIDE
     Dosage: 2 MILLIGRAM (0.04 MILLIGRAM/KILOGRAM DAILY DOSE, 7 DOSES PER WEEK), OTHER
     Route: 065
     Dates: start: 20181120, end: 20190402
  8. TEDUGLUTIDE [Suspect]
     Active Substance: TEDUGLUTIDE
     Dosage: 2.3 MILLIGRAM (0.05 MILLIGRAM/KILOGRAM DAILY DOSE, 7 DOSES PER WEEK), OTHER
     Route: 065
     Dates: start: 20190402
  9. ZOPICLONE [Concomitant]
     Active Substance: ZOPICLONE
     Indication: SLEEP DISORDER
  10. TEDUGLUTIDE [Suspect]
     Active Substance: TEDUGLUTIDE
     Indication: SHORT-BOWEL SYNDROME
     Dosage: 1.3 MILLIGRAM (0.03 MILLIGRAM/KILOGRAM DAILY DOSE, 7 DOSES PER WEEK), OTHER
     Route: 065
     Dates: start: 20171117, end: 20180809
  11. TEDUGLUTIDE [Suspect]
     Active Substance: TEDUGLUTIDE
     Dosage: 1.8 MILLIGRAM (0.04 MILLIGRAM/KILOGRAM DAILY DOSE, 7 DOSES PER WEEK), OTHER
     Route: 065
     Dates: start: 20180809, end: 20181120
  12. TEDUGLUTIDE [Suspect]
     Active Substance: TEDUGLUTIDE
     Dosage: 1.8 MILLIGRAM (0.04 MILLIGRAM/KILOGRAM DAILY DOSE, 7 DOSES PER WEEK), OTHER
     Route: 065
     Dates: start: 20180809, end: 20181120
  13. TEDUGLUTIDE [Suspect]
     Active Substance: TEDUGLUTIDE
     Dosage: 1.8 MILLIGRAM (0.04 MILLIGRAM/KILOGRAM DAILY DOSE, 7 DOSES PER WEEK), OTHER
     Route: 065
     Dates: start: 20180809, end: 20181120
  14. SPERSADEX [Concomitant]
     Active Substance: DEXAMETHASONE SODIUM PHOSPHATE
     Indication: CATARACT
  15. PARALGIN FORTE [CODEINE PHOSPHATE;PARACETAMOL] [Concomitant]
     Indication: NECK PAIN
  16. TEDUGLUTIDE [Suspect]
     Active Substance: TEDUGLUTIDE
     Dosage: 2 MILLIGRAM (0.04 MILLIGRAM/KILOGRAM DAILY DOSE, 7 DOSES PER WEEK), OTHER
     Route: 065
     Dates: start: 20181120, end: 20190402
  17. TEDUGLUTIDE [Suspect]
     Active Substance: TEDUGLUTIDE
     Indication: SHORT-BOWEL SYNDROME
     Dosage: 1.3 MILLIGRAM (0.03 MILLIGRAM/KILOGRAM DAILY DOSE, 7 DOSES PER WEEK), OTHER
     Route: 065
     Dates: start: 20171117, end: 20180809
  18. TEDUGLUTIDE [Suspect]
     Active Substance: TEDUGLUTIDE
     Indication: SHORT-BOWEL SYNDROME
     Dosage: 1.3 MILLIGRAM (0.03 MILLIGRAM/KILOGRAM DAILY DOSE, 7 DOSES PER WEEK), OTHER
     Route: 065
     Dates: start: 20171117, end: 20180809
  19. TEDUGLUTIDE [Suspect]
     Active Substance: TEDUGLUTIDE
     Dosage: 2.3 MILLIGRAM (0.05 MILLIGRAM/KILOGRAM DAILY DOSE, 7 DOSES PER WEEK), OTHER
     Route: 065
     Dates: start: 20190402
  20. TEDUGLUTIDE [Suspect]
     Active Substance: TEDUGLUTIDE
     Dosage: 2.3 MILLIGRAM (0.05 MILLIGRAM/KILOGRAM DAILY DOSE, 7 DOSES PER WEEK), OTHER
     Route: 065
     Dates: start: 20190402

REACTIONS (1)
  - Delirium [Recovered/Resolved]

NARRATIVE: CASE EVENT DATE: 20200709
